FAERS Safety Report 11330917 (Version 1)
Quarter: 2015Q3

REPORT INFORMATION
  Report Type: Spontaneous
  Country: US (occurrence: US)
  Receive Date: 20150803
  Receipt Date: 20150803
  Transmission Date: 20151125
  Serious: Yes (Disabling, Other)
  Sender: FDA-Public Use
  Company Number: CHPA2015US008753

PATIENT
  Sex: Female

DRUGS (4)
  1. GAS-X [Suspect]
     Active Substance: DIMETHICONE
     Indication: PRODUCT USED FOR UNKNOWN INDICATION
     Dosage: UNK
     Route: 048
  2. ADVIL [Suspect]
     Active Substance: IBUPROFEN
     Indication: PRODUCT USED FOR UNKNOWN INDICATION
     Dosage: 12 DF, PER DAY
     Route: 065
  3. VALIUM [Suspect]
     Active Substance: DIAZEPAM
     Indication: MUSCLE DISORDER
     Dosage: UNK, ON AND OFF
     Route: 065
  4. ADVIL [Suspect]
     Active Substance: IBUPROFEN
     Dosage: 1 DF, QW
     Route: 048
     Dates: start: 201501

REACTIONS (7)
  - Rhinorrhoea [Unknown]
  - Loss of consciousness [Unknown]
  - Muscle tightness [Unknown]
  - Skin burning sensation [Unknown]
  - Vaginal discharge [Unknown]
  - Walking disability [Not Recovered/Not Resolved]
  - Vomiting [Unknown]
